FAERS Safety Report 6283277-X (Version None)
Quarter: 2009Q3

REPORT INFORMATION
  Report Type: 
  Country: None (occurrence: None)
  Receive Date: 20090724
  Receipt Date: 20090707
  Transmission Date: 20100115
  Serious: No
  Sender: FDA-Public Use
  Company Number: US-JNJFOC-20090702589

PATIENT
  Sex: Male
  Weight: 95.26 kg

DRUGS (4)
  1. INVEGA [Suspect]
     Route: 048
  2. INVEGA [Suspect]
     Indication: SCHIZOPHRENIA
     Route: 048
  3. ZYPREXA [Concomitant]
  4. DEPAKOTE [Concomitant]
     Indication: DRUG THERAPY

REACTIONS (2)
  - DEPRESSION [None]
  - LIBIDO DECREASED [None]
